FAERS Safety Report 25085051 (Version 1)
Quarter: 2025Q1

REPORT INFORMATION
  Report Type: Spontaneous
  Country: US (occurrence: US)
  Receive Date: 20250317
  Receipt Date: 20250317
  Transmission Date: 20250409
  Serious: No
  Sender: BAYER HEALTHCARE LLC
  Company Number: US-BAYER-2025A032113

PATIENT
  Sex: Male

DRUGS (1)
  1. ASTEPRO [Suspect]
     Active Substance: AZELASTINE HYDROCHLORIDE
     Indication: Product used for unknown indication
     Dates: start: 20250306

REACTIONS (2)
  - Accidental exposure to product [Unknown]
  - Nausea [Unknown]

NARRATIVE: CASE EVENT DATE: 20250306
